FAERS Safety Report 5525521-X (Version None)
Quarter: 2007Q4

REPORT INFORMATION
  Report Type: 
  Country: None (occurrence: None)
  Receive Date: 20071126
  Receipt Date: 20071119
  Transmission Date: 20080405
  Serious: Yes (Hospitalization, Disabling, Other)
  Sender: FDA-Public Use
  Company Number: A0695181A

PATIENT
  Age: 84 Year
  Sex: Female

DRUGS (2)
  1. PAROXETINE [Suspect]
     Indication: DEPRESSION
     Dosage: 10MG PER DAY
     Route: 048
     Dates: start: 20071001
  2. ATIVAN [Concomitant]

REACTIONS (5)
  - CHOREOATHETOSIS [None]
  - DELIRIUM [None]
  - DYSKINESIA [None]
  - GRIMACING [None]
  - PERFORMANCE STATUS DECREASED [None]
